FAERS Safety Report 20650728 (Version 1)
Quarter: 2022Q1

REPORT INFORMATION
  Report Type: Spontaneous
  Country: CH (occurrence: CH)
  Receive Date: 20220329
  Receipt Date: 20220329
  Transmission Date: 20220423
  Serious: Yes (Death)
  Sender: FDA-Public Use
  Company Number: CH-BAYER-2022A045591

PATIENT

DRUGS (1)
  1. STIVARGA [Suspect]
     Active Substance: REGORAFENIB
     Dosage: DATE OF PURCHASE 40 MG 3 BOTTLE 28 PCS
     Dates: start: 20210913

REACTIONS (1)
  - Death [Fatal]
